FAERS Safety Report 8401474-1 (Version None)
Quarter: 2012Q2

REPORT INFORMATION
  Report Type: 
  Country: None (occurrence: None)
  Receive Date: 20120601
  Receipt Date: 20120530
  Transmission Date: 20120825
  Serious: Yes (Other)
  Sender: FDA-Public Use
  Company Number: PHHY2012AR046375

PATIENT
  Sex: Male

DRUGS (3)
  1. DIOVAN [Suspect]
     Indication: HYPERTENSION
     Dosage: 80 MG, DAILY
  2. NEBIVOLOL [Concomitant]
  3. ACETYLSALICYLIC ACID SRT [Concomitant]
     Dosage: 200 MG, DAILY

REACTIONS (4)
  - PAIN IN EXTREMITY [None]
  - GAIT DISTURBANCE [None]
  - ARTERIAL OCCLUSIVE DISEASE [None]
  - CARDIOMEGALY [None]
